FAERS Safety Report 4303216-8 (Version None)
Quarter: 2004Q1

REPORT INFORMATION
  Report Type: 
  Country: None (occurrence: None)
  Receive Date: 20040224
  Receipt Date: 20020923
  Transmission Date: 20041129
  Serious: Yes (Hospitalization, Other)
  Sender: FDA-Public Use
  Company Number: US-BRISTOL-MYERS SQUIBB COMPANY-12051132

PATIENT
  Age: 34 Year
  Sex: Male
  Weight: 42 kg

DRUGS (6)
  1. ATAZANAVIR [Suspect]
     Indication: HIV INFECTION
     Route: 048
     Dates: start: 20020924, end: 20021022
  2. COMBIVIR [Suspect]
     Dates: end: 20021022
  3. ACYCLOVIR CAPS 200 MG [Concomitant]
     Indication: VARICELLA
  4. ZITHROMAX [Concomitant]
     Indication: ANTIBACTERIAL PROPHYLAXIS
     Dates: end: 20030101
  5. ITRACONAZOLE [Concomitant]
     Indication: HISTOPLASMOSIS
  6. SEPTRA DS [Concomitant]
     Indication: PROPHYLAXIS
     Dosage: DOSAGE FORM = 1 TABLET

REACTIONS (4)
  - HEPATIC ENZYME INCREASED [None]
  - JAUNDICE [None]
  - NIGHT SWEATS [None]
  - RENAL ABSCESS [None]
